FAERS Safety Report 21310703 (Version 1)
Quarter: 2022Q3

REPORT INFORMATION
  Report Type: Spontaneous
  Country: FR (occurrence: FR)
  Receive Date: 20220909
  Receipt Date: 20220909
  Transmission Date: 20221027
  Serious: Yes (Hospitalization)
  Sender: FDA-Public Use
  Company Number: None

PATIENT
  Age: 71 Year
  Sex: Male
  Weight: 71 kg

DRUGS (7)
  1. PREDNISONE [Suspect]
     Active Substance: PREDNISONE
     Indication: Adenocarcinoma
     Dosage: UNIT DOSE : 2 DF , FREQUENCY TIME : 1 DAY   , DURATION : 24 DAY
     Dates: start: 20220420, end: 20220514
  2. FLUCONAZOLE [Suspect]
     Active Substance: FLUCONAZOLE
     Indication: Osteonecrosis
     Dosage: FORM STRENGTH : 100 MG , UNIT DOSE : 1 DF , FREQUENCY TIME : 1 DAY   , DURATION : 22 DAY
     Dates: start: 20220422, end: 20220514
  3. CLINDAMYCIN [Suspect]
     Active Substance: CLINDAMYCIN
     Indication: Osteonecrosis
     Dosage: FORM STRENGTH : 150 MG , UNIT DOSE : 6 DF , FREQUENCY TIME : 1 DAY   , DURATION : 22 DAY
     Dates: start: 20220422, end: 20220514
  4. ZYTIGA [Suspect]
     Active Substance: ABIRATERONE ACETATE
     Indication: Adenocarcinoma
     Dosage: FORM STRENGTH : 500 MG , UNIT DOSE : 2 DF , DURATION : 24 DAYS
     Dates: start: 20220420, end: 20220514
  5. CIPROFLOXACIN [Suspect]
     Active Substance: CIPROFLOXACIN
     Indication: Osteonecrosis
     Dosage: FORM STRENGTH : 500 MG , UNIT DOSE : 3 DF , FREQUENCY TIME : 1 DAY   , DURATION : 22 DAY
     Dates: start: 20220422, end: 20220514
  6. RABEPRAZOLE [Concomitant]
     Active Substance: RABEPRAZOLE
     Indication: Product used for unknown indication
  7. FENOFIBRATE [Concomitant]
     Active Substance: FENOFIBRATE
     Indication: Product used for unknown indication

REACTIONS (1)
  - Rash maculo-papular [Recovered/Resolved]

NARRATIVE: CASE EVENT DATE: 20220514
